FAERS Safety Report 8957767 (Version 1)
Quarter: 2012Q4

REPORT INFORMATION
  Report Type: 
  Country: US (occurrence: US)
  Receive Date: 20121210
  Receipt Date: 20121210
  Transmission Date: 20130627
  Serious: No
  Sender: FDA-Public Use
  Company Number: US-PFIZER INC-2012310126

PATIENT
  Sex: Female

DRUGS (1)
  1. ADVIL [Suspect]
     Indication: PAIN
     Dosage: UNK, as needed
     Route: 048
     Dates: end: 20121207

REACTIONS (3)
  - Expired drug administered [Unknown]
  - Hypoaesthesia oral [Unknown]
  - Product physical issue [Unknown]
